FAERS Safety Report 8417101 (Version 2)
Quarter: 2012Q4

REPORT INFORMATION
  Report Type: 
  Country: BR (occurrence: BR)
  Receive Date: 20120220
  Receipt Date: 20121008
  Transmission Date: 20130627
  Serious: Yes (Hospitalization, Disabling, Other)
  Sender: FDA-Public Use
  Company Number: BR-ASTRAZENECA-2012SE09891

PATIENT
  Age: 69 Year
  Sex: Male
  Weight: 105 kg

DRUGS (8)
  1. ATACAND [Suspect]
     Indication: HYPERTENSION
     Route: 048
     Dates: start: 20120209
  2. CRESTOR [Suspect]
     Route: 048
     Dates: start: 20120209
  3. UNKNOWN MEDICATION [Concomitant]
     Indication: ARTERIAL OCCLUSIVE DISEASE
     Route: 048
     Dates: start: 1996
  4. JANUMET [Concomitant]
     Indication: DIABETES MELLITUS
     Dosage: 50/1000 MG
     Route: 048
     Dates: start: 20120209
  5. GLIFAGE [Concomitant]
     Indication: DIABETES MELLITUS
     Route: 048
  6. PLAVIX [Concomitant]
     Indication: ARTERIAL OCCLUSIVE DISEASE
     Route: 048
     Dates: start: 1996
  7. EXODUS [Concomitant]
     Route: 048
  8. PROLOPA [Concomitant]
     Indication: TREMOR

REACTIONS (5)
  - Anaemia [Recovering/Resolving]
  - Spinal disorder [Recovered/Resolved]
  - Chest pain [Unknown]
  - Throat tightness [Unknown]
  - Platelet count decreased [Recovered/Resolved]
